FAERS Safety Report 5919536-7 (Version None)
Quarter: 2008Q4

REPORT INFORMATION
  Report Type: 
  Country: None (occurrence: None)
  Receive Date: 20081014
  Receipt Date: 20081014
  Transmission Date: 20090506
  Serious: Yes (Other)
  Sender: FDA-Public Use
  Company Number: None

PATIENT
  Age: 19 Year
  Sex: Female
  Weight: 81.6475 kg

DRUGS (1)
  1. MIRENA [Suspect]
     Indication: CONTRACEPTION
     Dosage: INTRAUTERINE SYSTEM EVERY DAY INTRA-UTERINE
     Route: 015
     Dates: start: 20080516, end: 20081013

REACTIONS (2)
  - ANGER [None]
  - MOOD SWINGS [None]
